FAERS Safety Report 25135889 (Version 1)
Quarter: 2025Q1

REPORT INFORMATION
  Report Type: Spontaneous
  Country: US (occurrence: US)
  Receive Date: 20250328
  Receipt Date: 20250328
  Transmission Date: 20250409
  Serious: No
  Sender: FRESENIUS KABI
  Company Number: US-FreseniusKabi-FK202504308

PATIENT
  Sex: Male

DRUGS (1)
  1. TYENNE [Suspect]
     Active Substance: TOCILIZUMAB-AAZG
     Indication: Rheumatoid arthritis

REACTIONS (1)
  - Therapeutic product effect decreased [Unknown]
